FAERS Safety Report 14245760 (Version 2)
Quarter: 2018Q1

REPORT INFORMATION
  Report Type: Report from Study
  Country: None (occurrence: US)
  Receive Date: 20171204
  Receipt Date: 20180314
  Transmission Date: 20180508
  Serious: Yes (Other)
  Sender: FDA-Public Use
  Company Number: US-ABBVIE-17K-163-1988607-00

PATIENT
  Sex: Female

DRUGS (1)
  1. HUMIRA [Suspect]
     Active Substance: ADALIMUMAB
     Indication: RHEUMATOID ARTHRITIS
     Route: 058
     Dates: end: 2017

REACTIONS (7)
  - Lipoma [Recovering/Resolving]
  - Cataract [Unknown]
  - Eye pain [Unknown]
  - Ocular hyperaemia [Unknown]
  - Osteoarthritis [Unknown]
  - Injection site rash [Unknown]
  - Rheumatoid arthritis [Recovering/Resolving]
